FAERS Safety Report 7705449-7 (Version None)
Quarter: 2011Q3

REPORT INFORMATION
  Report Type: 
  Country: None (occurrence: None)
  Receive Date: 20110824
  Receipt Date: 20110603
  Transmission Date: 20111222
  Serious: No
  Sender: FDA-Public Use
  Company Number: US-BAYER-2011-048751

PATIENT
  Age: 25 Year
  Sex: Female

DRUGS (2)
  1. MIRENA [Suspect]
     Dosage: 20 MCG/24HR, CONT
     Route: 015
     Dates: start: 20110412, end: 20110412
  2. MISOPROSTOL [Concomitant]
     Indication: PREMEDICATION
     Dosage: 400 MG, ONCE

REACTIONS (4)
  - COMPLICATION OF DEVICE INSERTION [None]
  - HYPERHIDROSIS [None]
  - PROCEDURAL HYPOTENSION [None]
  - POST PROCEDURAL DISCOMFORT [None]
